FAERS Safety Report 25389524 (Version 1)
Quarter: 2025Q2

REPORT INFORMATION
  Report Type: Other
  Country: DE (occurrence: DE)
  Receive Date: 20250603
  Receipt Date: 20250603
  Transmission Date: 20250717
  Serious: Yes (Hospitalization, Other)
  Sender: ALVOGEN
  Company Number: DE-ALVOGEN-2025098060

PATIENT
  Age: 46 Year
  Sex: Male

DRUGS (1)
  1. DEXTROAMPHETAMINE SACCHARATE, AMPHETAMINE ASPARTATE, DEXTROAMPHETAMINE [Suspect]
     Active Substance: AMPHETAMINE ASPARTATE\AMPHETAMINE SULFATE\DEXTROAMPHETAMINE SACCHARATE\DEXTROAMPHETAMINE SULFATE
     Indication: Drug abuse

REACTIONS (5)
  - Cerebral vasoconstriction [Recovered/Resolved]
  - Cerebellar infarction [Unknown]
  - Cerebellar stroke [Unknown]
  - Withdrawal syndrome [Unknown]
  - Drug abuse [Unknown]
